FAERS Safety Report 7984006-1 (Version None)
Quarter: 2011Q4

REPORT INFORMATION
  Report Type: 
  Country: None (occurrence: None)
  Receive Date: 20111214
  Receipt Date: 20111205
  Transmission Date: 20120403
  Serious: Yes (Hospitalization, Other)
  Sender: FDA-Public Use
  Company Number: 2011MA003652

PATIENT
  Sex: Female
  Weight: 38.465 kg

DRUGS (7)
  1. FORMULA [Concomitant]
  2. ALBUTEROL [Concomitant]
  3. PREVACID [Concomitant]
  4. METOCLOPRAMIDE [Suspect]
     Indication: GASTROOESOPHAGEAL REFLUX DISEASE
     Dosage: 2 MG;QID
     Dates: start: 20050601, end: 20070514
  5. FLOVENT [Concomitant]
  6. ACETAMINOPHEN [Concomitant]
  7. ZANTAC [Concomitant]

REACTIONS (17)
  - DYSTONIA [None]
  - MOTOR DYSFUNCTION [None]
  - HELICOBACTER INFECTION [None]
  - ECONOMIC PROBLEM [None]
  - EXPRESSIVE LANGUAGE DISORDER [None]
  - EXTRAPYRAMIDAL DISORDER [None]
  - ASTHMA [None]
  - UPPER RESPIRATORY TRACT INFECTION [None]
  - TARDIVE DYSKINESIA [None]
  - CHOREA [None]
  - COORDINATION ABNORMAL [None]
  - GASTROOESOPHAGEAL REFLUX DISEASE [None]
  - DYSKINESIA [None]
  - EMOTIONAL DISORDER [None]
  - BRUXISM [None]
  - SPEECH DISORDER [None]
  - GASTRIC DISORDER [None]
